FAERS Safety Report 8317085-2 (Version None)
Quarter: 2012Q2

REPORT INFORMATION
  Report Type: 
  Country: None (occurrence: None)
  Receive Date: 20120427
  Receipt Date: 20120423
  Transmission Date: 20120825
  Serious: Yes (Hospitalization)
  Sender: FDA-Public Use
  Company Number: ES-PFIZER INC-2012100499

PATIENT
  Age: 72 Year
  Sex: Male

DRUGS (6)
  1. MAGNESIUM HYDROXIDE [Concomitant]
     Indication: HEPATIC ENCEPHALOPATHY
     Dosage: 1 G/ 5 ML
     Route: 048
     Dates: start: 20110101, end: 20110326
  2. ALDACTONE [Suspect]
     Indication: OEDEMA PERIPHERAL
     Dosage: 25 MG, 1X/DAY
     Route: 048
     Dates: start: 20110322, end: 20110326
  3. OMEPRAZOLE [Concomitant]
     Indication: GASTRITIS PROPHYLAXIS
     Dosage: 20 MG, 1X/DAY
     Route: 048
     Dates: start: 20060101
  4. DUPHALAC [Concomitant]
     Indication: HEPATIC ENCEPHALOPATHY
     Dosage: 60 G, 1X/DAY
     Route: 048
     Dates: start: 20110101, end: 20110326
  5. LANTUS [Concomitant]
     Indication: TYPE 2 DIABETES MELLITUS
     Dosage: 8 IU, 1X/DAY
     Route: 058
     Dates: start: 20060101
  6. PROPRANOLOL HYDROCHLORIDE [Concomitant]
     Indication: VARICES OESOPHAGEAL
     Dosage: 20 MG, 1X/DAY
     Route: 048
     Dates: start: 20100801

REACTIONS (1)
  - HEPATIC ENCEPHALOPATHY [None]
